FAERS Safety Report 8087212-3 (Version None)
Quarter: 2012Q1

REPORT INFORMATION
  Report Type: 
  Country: None (occurrence: None)
  Receive Date: 20120128
  Receipt Date: 20110427
  Transmission Date: 20120608
  Serious: No
  Sender: FDA-Public Use
  Company Number: US-ABBOTT-11P-163-0722057-00

PATIENT
  Age: 60 Year
  Sex: Male

DRUGS (7)
  1. MEDICATION FOR ENLARGED PROSTATE [Concomitant]
     Indication: PROSTATOMEGALY
     Dates: start: 20080101
  2. BLOOD PRESSURE MEDICATION [Concomitant]
     Indication: BLOOD PRESSURE
     Dates: start: 20080101
  3. SORIATANE [Concomitant]
     Indication: PSORIASIS
     Dates: start: 20080501
  4. HUMIRA [Suspect]
     Indication: PSORIATIC ARTHROPATHY
     Dates: start: 20080501, end: 20101201
  5. PERCOCET [Concomitant]
     Indication: ARTHRITIS
     Dates: start: 20080501
  6. HUMIRA [Suspect]
     Dates: start: 20110215
  7. HYDROCHLOROTHIAZIDE [Concomitant]
     Indication: HYPERTENSION
     Dosage: HALF A PILL EVERY DAY
     Dates: start: 20080101

REACTIONS (1)
  - PSORIASIS [None]
